FAERS Safety Report 8580451-4 (Version None)
Quarter: 2012Q3

REPORT INFORMATION
  Report Type: 
  Country: None (occurrence: None)
  Receive Date: 20120808
  Receipt Date: 20120801
  Transmission Date: 20120928
  Serious: Yes (Hospitalization)
  Sender: FDA-Public Use
  Company Number: US-ROCHE-1096542

PATIENT
  Age: 48 Year
  Sex: Female
  Weight: 92 kg

DRUGS (3)
  1. BENDAMUSTINE HYDROCHLORIDE [Suspect]
     Indication: B-CELL LYMPHOMA
     Dates: start: 20120228, end: 20120620
  2. MABTHERA [Suspect]
     Indication: B-CELL LYMPHOMA
     Dates: start: 20120228, end: 20120621
  3. NEULASTA [Concomitant]

REACTIONS (1)
  - PULMONARY EMBOLISM [None]
